FAERS Safety Report 14248473 (Version 3)
Quarter: 2018Q4

REPORT INFORMATION
  Report Type: Spontaneous
  Country: CA (occurrence: CA)
  Receive Date: 20171204
  Receipt Date: 20181109
  Transmission Date: 20190204
  Serious: Yes (Other)
  Sender: FDA-Public Use
  Company Number: CA-PURDUE PHARMA-CAN-2017-0008114

PATIENT
  Age: 56 Year
  Sex: Male

DRUGS (13)
  1. HUMIRA [Suspect]
     Active Substance: ADALIMUMAB
     Indication: PRODUCT USED FOR UNKNOWN INDICATION
     Dosage: UNK
     Route: 065
  2. OXYCODONE HYDROCHLORIDE. [Suspect]
     Active Substance: OXYCODONE HYDROCHLORIDE
     Indication: PAIN
     Dosage: 10 MG, UNK
     Route: 065
  3. METHOTREXATE SODIUM. [Suspect]
     Active Substance: METHOTREXATE SODIUM
     Indication: RHEUMATOID ARTHRITIS
     Dosage: UNK
     Route: 065
  4. SULFASALAZINE. [Suspect]
     Active Substance: SULFASALAZINE
     Indication: RHEUMATOID ARTHRITIS
     Dosage: UNK
     Route: 065
  5. MINOCYCLINE [Suspect]
     Active Substance: MINOCYCLINE\MINOCYCLINE HYDROCHLORIDE
     Indication: PRODUCT USED FOR UNKNOWN INDICATION
     Dosage: UNK
     Route: 065
  6. ORENCIA [Suspect]
     Active Substance: ABATACEPT
     Indication: PRODUCT USED FOR UNKNOWN INDICATION
     Dosage: UNK
     Route: 065
  7. LEFLUNOMIDE. [Suspect]
     Active Substance: LEFLUNOMIDE
     Indication: PRODUCT USED FOR UNKNOWN INDICATION
     Dosage: UNK
     Route: 065
  8. ACTEMRA [Suspect]
     Active Substance: TOCILIZUMAB
     Indication: PRODUCT USED FOR UNKNOWN INDICATION
     Dosage: UNK
     Route: 065
  9. PREDNISONE. [Concomitant]
     Active Substance: PREDNISONE
     Indication: PRODUCT USED FOR UNKNOWN INDICATION
     Dosage: 7 MG, DAILY
     Route: 065
  10. PLAQUENIL                          /00072602/ [Suspect]
     Active Substance: HYDROXYCHLOROQUINE DIPHOSPHATE
     Indication: PRODUCT USED FOR UNKNOWN INDICATION
     Dosage: 400 MG, UNK
     Route: 065
  11. MARIHUANA [Suspect]
     Active Substance: CANNABIS SATIVA SUBSP. SATIVA FLOWERING TOP
     Indication: PAIN
     Dosage: UNK
     Route: 065
  12. LYRICA [Concomitant]
     Active Substance: PREGABALIN
     Indication: PAIN
     Route: 048
  13. ENBREL [Suspect]
     Active Substance: ETANERCEPT
     Indication: RHEUMATOID ARTHRITIS
     Dosage: UNK
     Route: 065

REACTIONS (16)
  - Feeling abnormal [Unknown]
  - Urticaria [Unknown]
  - Haemoglobin decreased [Unknown]
  - Photosensitivity reaction [Unknown]
  - Red blood cell sedimentation rate increased [Unknown]
  - Rheumatoid arthritis [Unknown]
  - Interstitial lung disease [Unknown]
  - Stomatitis [Unknown]
  - Joint swelling [Unknown]
  - Herpes zoster [Unknown]
  - Drug intolerance [Unknown]
  - C-reactive protein abnormal [Unknown]
  - Red blood cell sedimentation rate abnormal [Unknown]
  - Drug hypersensitivity [Unknown]
  - Drug ineffective [Unknown]
  - C-reactive protein increased [Unknown]
